FAERS Safety Report 20522518 (Version 1)
Quarter: 2022Q1

REPORT INFORMATION
  Report Type: Spontaneous
  Country: US (occurrence: US)
  Receive Date: 20220226
  Receipt Date: 20220226
  Transmission Date: 20220423
  Serious: Yes (Other)
  Sender: FDA-Public Use
  Company Number: US-NOVARTISPH-NVSC2022US045191

PATIENT
  Age: 64 Year
  Sex: Male

DRUGS (3)
  1. RANITIDINE [Suspect]
     Active Substance: RANITIDINE
     Indication: Gastrooesophageal reflux disease
     Dosage: ,,150 MG,300 MG,,,,DAILY,
     Route: 048
     Dates: start: 199001, end: 201701
  2. RANITIDINE [Suspect]
     Active Substance: RANITIDINE
     Indication: Gastrooesophageal reflux disease
     Dosage: ,,150 MG,300 MG,,,,DAILY,
     Route: 048
     Dates: start: 199001, end: 201701
  3. RANITIDINE [Suspect]
     Active Substance: RANITIDINE
     Indication: Gastrooesophageal reflux disease
     Dosage: ,,,UNKNOWN AT THIS TIME,,DAILY,
     Route: 048
     Dates: start: 199001, end: 201701

REACTIONS (3)
  - Uterine cancer [Recovering/Resolving]
  - Prostate cancer [Recovering/Resolving]
  - Incorrect dose administered [Unknown]

NARRATIVE: CASE EVENT DATE: 20200101
